FAERS Safety Report 15613000 (Version 2)
Quarter: 2018Q4

REPORT INFORMATION
  Report Type: Spontaneous
  Country: FR (occurrence: FR)
  Receive Date: 20181113
  Receipt Date: 20181115
  Transmission Date: 20190205
  Serious: Yes (Hospitalization)
  Sender: FDA-Public Use
  Company Number: FR-PFIZER INC-2018464282

PATIENT
  Age: 90 Year
  Sex: Female

DRUGS (16)
  1. PROZAC [Suspect]
     Active Substance: FLUOXETINE HYDROCHLORIDE
     Dosage: 1 DF, DAILY
     Dates: start: 20181013, end: 20181015
  2. PREVISCAN [FLUINDIONE] [Concomitant]
     Active Substance: FLUINDIONE
     Dosage: 20 MG, ALTERNATING WITH LERCAN
  3. LASILIX SPECIAL [FUROSEMIDE] [Concomitant]
     Dosage: 500 MG, 1X/DAY (IN THE MORNING)
  4. MELAXOSE [Concomitant]
     Active Substance: LACTULOSE\PARAFFIN
     Dosage: 1 TO 3 DOSING SPOON ON THE EVENING
  5. PROZAC [Suspect]
     Active Substance: FLUOXETINE HYDROCHLORIDE
     Indication: HERPES ZOSTER
     Dosage: 10 MG, ONCE DAILY (1/2 TABLET/DAY)
     Route: 048
     Dates: start: 20181009
  6. LERCAN [Concomitant]
     Active Substance: LERCANIDIPINE
     Dosage: 10 MG, 1X/DAY (1 TABLET IN THE MORNING)
  7. DIFFU K [Concomitant]
     Active Substance: POTASSIUM CHLORIDE
     Dosage: 1 DF, 3X/DAY (IN THE MORNING, AT NOON AND IN THE EVENING)
  8. EPINITRIL [Concomitant]
     Active Substance: NITROGLYCERIN
     Dosage: 10 MG, DAILY, 12H/24H
  9. VERSATIS [Concomitant]
     Active Substance: LIDOCAINE
     Dosage: 700 MG, ONCE A DAY
  10. NEURONTIN [Suspect]
     Active Substance: GABAPENTIN
     Dosage: 600 MG, DAILY (POSOLOGY INCREASED AT 2 DF IN THE MORNING, AT NOON AND IN THE EVENING)
     Route: 048
     Dates: end: 20181015
  11. IMOVANE [Concomitant]
     Active Substance: ZOPICLONE
     Dosage: 7.5 MG, 1X/DAY AT BEDTIME
  12. SERETIDE [Concomitant]
     Active Substance: FLUTICASONE PROPIONATE\SALMETEROL XINAFOATE
     Dosage: 2 DF, 2X/DAY IN THE MORNING AN IN THE EVENING
  13. NEURONTIN [Suspect]
     Active Substance: GABAPENTIN
     Indication: HERPES ZOSTER
     Dosage: 400 MG, DAILY (1 DF IN THE MORNING, 2 AT NOON AND 1 IN THE EVENING)
     Route: 048
     Dates: start: 20180914
  14. TRIATEC (RAMIPRIL) [Suspect]
     Active Substance: RAMIPRIL
     Indication: HYPERTENSION
     Dosage: 1.25 MG, 1X/DAY IN THE MORNING
     Route: 048
     Dates: start: 20171024, end: 20181015
  15. NEBIVOLOL. [Concomitant]
     Active Substance: NEBIVOLOL
     Dosage: 5 MG, 2X/DAY (1 TABLET MORNING AND EVENING)
  16. LAMALINE (ACETAMINOPHEN\CAFFEINE\OPIUM) [Concomitant]
     Active Substance: ACETAMINOPHEN\CAFFEINE\OPIUM
     Dosage: 1 DF, 3X/DAY (IN THE MORNING, AT NOON AND IN THE EVENING)

REACTIONS (3)
  - Macroglossia [Recovered/Resolved]
  - Angioedema [Recovered/Resolved]
  - Dyspnoea [Recovered/Resolved]

NARRATIVE: CASE EVENT DATE: 20181014
